FAERS Safety Report 6842910-1 (Version None)
Quarter: 2010Q3

REPORT INFORMATION
  Report Type: 
  Country: None (occurrence: None)
  Receive Date: 20100714
  Receipt Date: 20071005
  Transmission Date: 20110219
  Serious: No
  Sender: FDA-Public Use
  Company Number: US-PFIZER INC-2007066842

PATIENT
  Sex: Male
  Weight: 80.9 kg

DRUGS (3)
  1. CHANTIX [Suspect]
     Indication: SMOKING CESSATION THERAPY
     Dosage: EVERY DAY
     Dates: start: 20070701, end: 20070701
  2. CHANTIX [Interacting]
     Indication: TOBACCO ABUSE
  3. EFFEXOR [Interacting]

REACTIONS (6)
  - DELUSIONAL PERCEPTION [None]
  - DEPRESSION [None]
  - DRUG INTERACTION [None]
  - FLATULENCE [None]
  - NAUSEA [None]
  - SOMNOLENCE [None]
